FAERS Safety Report 9272148 (Version 2)
Quarter: 2013Q4

REPORT INFORMATION
  Report Type: Spontaneous
  Country: US (occurrence: US)
  Receive Date: 20130506
  Receipt Date: 20131118
  Transmission Date: 20140711
  Serious: Yes (Death, Life-Threatening)
  Sender: FDA-Public Use
  Company Number: US-009507513-1305USA000812

PATIENT
  Sex: Male

DRUGS (2)
  1. INTEGRILIN [Suspect]
     Indication: THERAPEUTIC PROCEDURE
     Dosage: UNK
     Route: 042
     Dates: start: 201304
  2. HEPARIN [Concomitant]

REACTIONS (1)
  - Dyspnoea [Fatal]
